FAERS Safety Report 9548857 (Version 2)
Quarter: 2014Q1

REPORT INFORMATION
  Report Type: Spontaneous
  Country: US (occurrence: None)
  Receive Date: 20130627
  Receipt Date: 20131223
  Transmission Date: 20141002
  Serious: No
  Sender: FDA-Public Use
  Company Number: 1000043727

PATIENT
  Age: 86 Year
  Sex: Male

DRUGS (7)
  1. LINZESS (LINACLOTIDE) (290 MICROGRAM, CAPSULES) [Suspect]
     Indication: IRRITABLE BOWEL SYNDROME
     Dosage: 290 MCG (290 MCG, 1 IN 1 D), ORAL
     Route: 048
     Dates: start: 201303
  2. INSULIN (INSULIN) (INSULIN) [Concomitant]
  3. DILTIAZEM (DILTIAZEM HYDROCHLORIDE) (DIHYDROCHLORIDE) [Concomitant]
  4. LOSARTAN (LOSARTAN) (LOSARTAN) [Concomitant]
  5. ROSUVASTATIN (ROSUVASTATIN) (ROSUVASTATIN) [Concomitant]
  6. MIRALAX (POLYETHYLENE GLYCOL) (POLYETHYLENE GLYCOL) [Concomitant]
  7. CELEXA (CITALOPRAM HYDROBROMIDE) (CITALOPRAM HYDROBROMIDE) [Concomitant]

REACTIONS (8)
  - Diarrhoea [None]
  - Faecal volume decreased [None]
  - Abdominal distension [None]
  - Flatulence [None]
  - Nausea [None]
  - Abdominal pain [None]
  - Drug ineffective [None]
  - Constipation [None]
